FAERS Safety Report 9069249 (Version 1)
Quarter: 2013Q1

REPORT INFORMATION
  Report Type: Report from Study
  Country: US (occurrence: US)
  Receive Date: 20130131
  Receipt Date: 20130131
  Transmission Date: 20140127
  Serious: No
  Sender: FDA-Public Use
  Company Number: US-ABBOTT-12P-163-1001496-00

PATIENT
  Sex: Male
  Weight: 48.12 kg

DRUGS (11)
  1. HUMIRA [Suspect]
     Indication: CROHN^S DISEASE
     Dosage: DAY 1
     Dates: start: 20121017, end: 20121017
  2. HUMIRA [Suspect]
     Dates: start: 201210
  3. ASACOL [Concomitant]
     Indication: PRODUCT USED FOR UNKNOWN INDICATION
  4. CALCIUM + D [Concomitant]
     Indication: PRODUCT USED FOR UNKNOWN INDICATION
  5. IMITREX [Concomitant]
     Indication: PRODUCT USED FOR UNKNOWN INDICATION
  6. MULTIPLE VITAMIN [Concomitant]
     Indication: PRODUCT USED FOR UNKNOWN INDICATION
  7. PREDNISONE [Concomitant]
     Indication: PRODUCT USED FOR UNKNOWN INDICATION
  8. FLORASTOR [Concomitant]
     Indication: ABDOMINAL DISCOMFORT
     Dates: start: 201210
  9. FLORASTOR [Concomitant]
     Indication: NAUSEA
  10. ZOFRAN [Concomitant]
     Indication: ABDOMINAL DISCOMFORT
     Dates: start: 201210
  11. ZOFRAN [Concomitant]
     Indication: NAUSEA

REACTIONS (2)
  - Nausea [Unknown]
  - Abdominal discomfort [Unknown]
